FAERS Safety Report 13873323 (Version 1)
Quarter: 2017Q3

REPORT INFORMATION
  Report Type: Report from Study
  Country: US (occurrence: US)
  Receive Date: 20170816
  Receipt Date: 20170816
  Transmission Date: 20171127
  Serious: Yes (Other)
  Sender: FDA-Public Use
  Company Number: US-AMGEN-USASL2017121185

PATIENT
  Age: 62 Year
  Sex: Female

DRUGS (4)
  1. ENBREL [Suspect]
     Active Substance: ETANERCEPT
     Indication: POLYMYALGIA RHEUMATICA
     Dosage: 50 MG, QWK
     Route: 065
     Dates: end: 201701
  2. HYDROXYCHLOROQUINE [Concomitant]
     Active Substance: HYDROXYCHLOROQUINE
     Dosage: UNK
  3. PREDNISONE. [Concomitant]
     Active Substance: PREDNISONE
     Dosage: 5 MG, QD
  4. ENBREL [Suspect]
     Active Substance: ETANERCEPT
     Indication: NECROBIOSIS
     Dosage: 50 MG, QWK
     Route: 065
     Dates: start: 201704

REACTIONS (6)
  - Pneumonia [Unknown]
  - Wrong technique in product usage process [Unknown]
  - Off label use [Unknown]
  - Malaise [Unknown]
  - Injection site discomfort [Unknown]
  - Injury associated with device [Unknown]

NARRATIVE: CASE EVENT DATE: 201701
